FAERS Safety Report 19698541 (Version 2)
Quarter: 2021Q4

REPORT INFORMATION
  Report Type: Spontaneous
  Country: US (occurrence: US)
  Receive Date: 20210813
  Receipt Date: 20211103
  Transmission Date: 20220303
  Serious: Yes (Hospitalization)
  Sender: FDA-Public Use
  Company Number: US-MERCK HEALTHCARE KGAA-9257526

PATIENT
  Age: 33 Year
  Sex: Female

DRUGS (1)
  1. GONAL-F RFF [Suspect]
     Active Substance: FOLLITROPIN
     Indication: Product used for unknown indication
     Route: 058
     Dates: end: 202108

REACTIONS (4)
  - Hypersensitivity [Unknown]
  - Cerebrovascular accident [Unknown]
  - Hypoaesthesia [Not Recovered/Not Resolved]
  - Pain [Unknown]

NARRATIVE: CASE EVENT DATE: 20210801
